FAERS Safety Report 4575838-0 (Version None)
Quarter: 2005Q1

REPORT INFORMATION
  Report Type: 
  Country: None (occurrence: None)
  Receive Date: 20050209
  Receipt Date: 20030130
  Transmission Date: 20050727
  Serious: Yes (Hospitalization, Disabling)
  Sender: FDA-Public Use
  Company Number: US-MERCK-0302USA00005

PATIENT
  Age: 63 Year
  Sex: Female
  Weight: 94 kg

DRUGS (21)
  1. VIOXX [Suspect]
     Indication: ARTHRALGIA
     Route: 048
     Dates: start: 20000101, end: 20000101
  2. VIOXX [Suspect]
     Route: 065
  3. VIOXX [Suspect]
     Indication: FIBROMYALGIA
     Route: 048
     Dates: start: 20000101, end: 20000101
  4. VIOXX [Suspect]
     Route: 065
  5. INSULIN [Concomitant]
     Indication: DIABETES MELLITUS
     Route: 065
     Dates: start: 20000101
  6. VICODIN [Concomitant]
     Indication: PAIN
     Route: 065
     Dates: start: 20000101
  7. MS CONTIN [Concomitant]
     Indication: PAIN
     Route: 065
     Dates: start: 20000101
  8. CAPTOPRIL [Concomitant]
     Indication: BLOOD PRESSURE
     Route: 065
     Dates: start: 20000101
  9. LOTENSIN [Concomitant]
     Route: 065
     Dates: start: 19930101, end: 20000101
  10. XANAX [Concomitant]
     Indication: NERVOUSNESS
     Route: 065
     Dates: start: 20000101
  11. HYDRO-CHLOR [Concomitant]
     Indication: MYALGIA
     Route: 065
     Dates: start: 20000101
  12. ELAVIL [Concomitant]
     Route: 048
  13. HEPARIN [Concomitant]
     Indication: CARDIAC DISORDER
     Route: 065
     Dates: start: 19950501
  14. ASPIRIN [Concomitant]
     Indication: PAIN
     Route: 065
  15. ASPIRIN [Concomitant]
     Indication: OSTEOARTHRITIS
     Route: 065
  16. NEURONTIN [Concomitant]
     Route: 065
     Dates: end: 20001001
  17. ZOLOFT [Concomitant]
     Route: 065
     Dates: end: 20001001
  18. ZANTAC [Concomitant]
     Route: 065
  19. IBUPROFEN [Concomitant]
     Route: 065
  20. HYDROXYCHLOROQUINE SULFATE [Concomitant]
     Route: 065
  21. COMPAZINE [Concomitant]
     Route: 065

REACTIONS (35)
  - ABDOMINAL HERNIA [None]
  - ANAEMIA [None]
  - ANGINA PECTORIS [None]
  - ARTHRALGIA [None]
  - CHEST DISCOMFORT [None]
  - CONDITION AGGRAVATED [None]
  - CONFUSIONAL STATE [None]
  - CONNECTIVE TISSUE DISORDER [None]
  - DEPRESSION [None]
  - DIABETES MELLITUS [None]
  - DIABETES MELLITUS NON-INSULIN-DEPENDENT [None]
  - DIVERTICULUM DUODENAL [None]
  - DIZZINESS [None]
  - DRUG INEFFECTIVE [None]
  - DYSPHORIA [None]
  - FALL [None]
  - GASTRITIS [None]
  - GENERALISED ANXIETY DISORDER [None]
  - HAEMORRHOIDS [None]
  - HYPERTENSION [None]
  - IDIOPATHIC THROMBOCYTOPENIC PURPURA [None]
  - INFLAMMATION [None]
  - INJURY [None]
  - INTESTINAL OBSTRUCTION [None]
  - JOINT LOCK [None]
  - MALAISE [None]
  - MELAENA [None]
  - NERVOUSNESS [None]
  - PAIN [None]
  - SJOGREN'S SYNDROME [None]
  - STOMACH DISCOMFORT [None]
  - SYSTEMIC LUPUS ERYTHEMATOSUS [None]
  - TREMOR [None]
  - UPPER GASTROINTESTINAL HAEMORRHAGE [None]
  - VOMITING [None]
